FAERS Safety Report 14859555 (Version 2)
Quarter: 2018Q2

REPORT INFORMATION
  Report Type: Spontaneous
  Country: US (occurrence: US)
  Receive Date: 20180508
  Receipt Date: 20180518
  Transmission Date: 20180711
  Serious: No
  Sender: FDA-Public Use
  Company Number: US-PFIZER INC-2018139336

PATIENT
  Sex: Male

DRUGS (1)
  1. NITROSTAT [Suspect]
     Active Substance: NITROGLYCERIN
     Indication: NON-CARDIAC CHEST PAIN
     Dosage: UNK
     Route: 060
     Dates: start: 20180403, end: 20180403

REACTIONS (3)
  - Drug ineffective for unapproved indication [Recovered/Resolved]
  - Poor quality drug administered [Unknown]
  - Product solubility abnormal [Unknown]

NARRATIVE: CASE EVENT DATE: 20180403
